FAERS Safety Report 16157581 (Version 1)
Quarter: 2019Q2

REPORT INFORMATION
  Report Type: Spontaneous
  Country: US (occurrence: US)
  Receive Date: 20190404
  Receipt Date: 20190404
  Transmission Date: 20190711
  Serious: No
  Sender: FDA-Public Use
  Company Number: US-ELI_LILLY_AND_COMPANY-US201903010991

PATIENT
  Sex: Male

DRUGS (3)
  1. HUMALOG [Suspect]
     Active Substance: INSULIN LISPRO
     Dosage: UNK UNK, PRN (USING FOR ABOUT 10 TO 15 YEARS) (THREE TIMES A DAY WITH MEALS)
     Route: 058
  2. LEVEMIR [Concomitant]
     Active Substance: INSULIN DETEMIR
     Indication: TYPE 2 DIABETES MELLITUS
     Dosage: 46 IU, DAILY (ONCE A DAY AT NIGHT/AT BEDTIME)
     Route: 065
  3. HUMALOG [Suspect]
     Active Substance: INSULIN LISPRO
     Indication: TYPE 2 DIABETES MELLITUS
     Dosage: UNK UNK, PRN (USING FOR ABOUT 10 TO 15 YEARS) (THREE TIMES A DAY WITH MEALS)
     Route: 058
     Dates: start: 2004

REACTIONS (4)
  - Blood glucose increased [Unknown]
  - Sciatica [Unknown]
  - Expired product administered [Unknown]
  - Limb discomfort [Unknown]

NARRATIVE: CASE EVENT DATE: 201809
